FAERS Safety Report 5153389-2 (Version None)
Quarter: 2006Q4

REPORT INFORMATION
  Report Type: 
  Country: None (occurrence: None)
  Receive Date: 20061113
  Receipt Date: 20061101
  Transmission Date: 20070319
  Serious: Yes (Other)
  Sender: FDA-Public Use
  Company Number: GBWYE282719OCT06

PATIENT
  Age: 43 Year
  Sex: Male

DRUGS (3)
  1. EFFEXOR XR [Suspect]
     Indication: DEPRESSION
     Dosage: 225 MG FREQUENCY UNKNOWN
     Route: 048
     Dates: start: 20040201
  2. QUETIAPINE FUMARATE [Concomitant]
  3. PROPRANOLOL [Concomitant]

REACTIONS (4)
  - AGGRESSION [None]
  - LACERATION [None]
  - LIMB INJURY [None]
  - PHYSICAL ASSAULT [None]
